FAERS Safety Report 24714401 (Version 4)
Quarter: 2025Q1

REPORT INFORMATION
  Report Type: Report from Study
  Country: BR (occurrence: BR)
  Receive Date: 20241209
  Receipt Date: 20250305
  Transmission Date: 20250408
  Serious: Yes (Hospitalization, Other)
  Sender: BIOGEN
  Company Number: BR-BIOGEN-2024BI01290857

PATIENT
  Age: 43 Year
  Sex: Female
  Weight: 50 kg

DRUGS (10)
  1. TYSABRI [Suspect]
     Active Substance: NATALIZUMAB
     Indication: Secondary progressive multiple sclerosis
     Route: 050
  2. TYSABRI [Suspect]
     Active Substance: NATALIZUMAB
     Route: 050
     Dates: start: 201802
  3. TYSABRI [Suspect]
     Active Substance: NATALIZUMAB
     Route: 050
     Dates: start: 20220118
  4. TYSABRI [Suspect]
     Active Substance: NATALIZUMAB
     Route: 050
  5. TYSABRI [Suspect]
     Active Substance: NATALIZUMAB
     Route: 050
     Dates: start: 202301
  6. TYSABRI [Suspect]
     Active Substance: NATALIZUMAB
     Route: 050
  7. RIVOTRIL [Concomitant]
     Active Substance: CLONAZEPAM
     Indication: Anxiety
     Route: 050
     Dates: start: 202109
  8. RIVOTRIL [Concomitant]
     Active Substance: CLONAZEPAM
     Dosage: 5 DROPS AT NIGHT
     Route: 050
     Dates: start: 2017
  9. RIVOTRIL [Concomitant]
     Active Substance: CLONAZEPAM
     Dosage: 5 DROPS AT NIGHT
     Route: 050
     Dates: start: 2022
  10. SERTRALINE [Concomitant]
     Active Substance: SERTRALINE HYDROCHLORIDE
     Indication: Depression
     Route: 050
     Dates: start: 202109

REACTIONS (6)
  - Multiple sclerosis pseudo relapse [Recovered/Resolved with Sequelae]
  - Fall [Recovered/Resolved]
  - Seizure [Recovered/Resolved with Sequelae]
  - Treatment failure [Unknown]
  - Progressive multiple sclerosis [Unknown]
  - Loss of consciousness [Unknown]

NARRATIVE: CASE EVENT DATE: 20240301
